FAERS Safety Report 25351694 (Version 1)
Quarter: 2025Q2

REPORT INFORMATION
  Report Type: Spontaneous
  Country: US (occurrence: None)
  Receive Date: 20250522
  Receipt Date: 20250522
  Transmission Date: 20250717
  Serious: Yes (unspecified)
  Sender: FDA-CTU
  Company Number: None

PATIENT
  Age: 33 Year
  Sex: Male

DRUGS (2)
  1. COSENTYX [Suspect]
     Active Substance: SECUKINUMAB
     Dosage: FREQUENCY : MONTHLY;?
  2. TREMFYA [Suspect]
     Active Substance: GUSELKUMAB

REACTIONS (3)
  - Drug ineffective [None]
  - Drug specific antibody present [None]
  - Therapy change [None]
